FAERS Safety Report 25225425 (Version 1)
Quarter: 2025Q2

REPORT INFORMATION
  Report Type: Spontaneous
  Country: JP (occurrence: JP)
  Receive Date: 20250422
  Receipt Date: 20250422
  Transmission Date: 20250717
  Serious: Yes (Other)
  Sender: PROVEPHARM
  Company Number: JP-Provepharm-2175344

PATIENT
  Age: 59 Year
  Sex: Male

DRUGS (1)
  1. METHYLENE BLUE [Suspect]
     Active Substance: METHYLENE BLUE

REACTIONS (2)
  - Haemolytic anaemia [Recovering/Resolving]
  - Renal impairment [Recovering/Resolving]
